FAERS Safety Report 12188305 (Version 2)
Quarter: 2016Q2

REPORT INFORMATION
  Report Type: Spontaneous
  Country: US (occurrence: US)
  Receive Date: 20160317
  Receipt Date: 20160511
  Transmission Date: 20160815
  Serious: No
  Sender: FDA-Public Use
  Company Number: US-009507513-1603USA005912

PATIENT
  Age: 22 Year
  Sex: Female
  Weight: 76.19 kg

DRUGS (1)
  1. IMPLANON [Suspect]
     Active Substance: ETONOGESTREL
     Indication: CONTRACEPTION
     Dosage: EVERY 3 YEARS,INSERTED IN RIGHT ARM
     Route: 059
     Dates: start: 20100119

REACTIONS (11)
  - Dysmenorrhoea [Not Recovered/Not Resolved]
  - Device dislocation [Not Recovered/Not Resolved]
  - Complication associated with device [Not Recovered/Not Resolved]
  - Menorrhagia [Not Recovered/Not Resolved]
  - Infertility female [Not Recovered/Not Resolved]
  - Migraine [Not Recovered/Not Resolved]
  - Menstruation irregular [Unknown]
  - Device difficult to use [Unknown]
  - Incorrect drug administration duration [Unknown]
  - Hormone level abnormal [Not Recovered/Not Resolved]
  - Amenorrhoea [Recovered/Resolved]

NARRATIVE: CASE EVENT DATE: 2010
